FAERS Safety Report 8523308-7 (Version None)
Quarter: 2012Q3

REPORT INFORMATION
  Report Type: 
  Country: None (occurrence: None)
  Receive Date: 20120720
  Receipt Date: 20120717
  Transmission Date: 20120928
  Serious: Yes (Hospitalization)
  Sender: FDA-Public Use
  Company Number: US-AMGEN-USASP2012044445

PATIENT
  Age: 46 Year
  Sex: Male

DRUGS (1)
  1. ENBREL [Suspect]
     Indication: PSORIASIS
     Dosage: 50 MG, QWK
     Dates: end: 20120701

REACTIONS (6)
  - SINUSITIS [None]
  - INFECTION [None]
  - INFLUENZA LIKE ILLNESS [None]
  - SKIN INFECTION [None]
  - CYST [None]
  - SEPSIS [None]
